FAERS Safety Report 10384311 (Version 1)
Quarter: 2014Q3

REPORT INFORMATION
  Report Type: Spontaneous
  Country: DE (occurrence: DE)
  Receive Date: 20140814
  Receipt Date: 20140814
  Transmission Date: 20150326
  Serious: Yes (Hospitalization)
  Sender: FDA-Public Use
  Company Number: DE-B.I. PHARMACEUTICALS,INC./RIDGEFIELD-2014-BI-36981DE

PATIENT
  Age: 54 Year
  Sex: Female
  Weight: 59 kg

DRUGS (5)
  1. TAVOR EXP. [Concomitant]
     Dosage: 1 MG
     Route: 048
     Dates: start: 20130725
  2. LORAZEPAM. [Concomitant]
     Active Substance: LORAZEPAM
     Dosage: 1 MG
     Route: 048
     Dates: start: 20130617
  3. JODID [Concomitant]
     Active Substance: IODINE
     Dosage: 0.5 ANZ
     Route: 048
     Dates: start: 20130630, end: 201404
  4. PRADAXA [Suspect]
     Active Substance: DABIGATRAN ETEXILATE MESYLATE
     Indication: ATRIAL FIBRILLATION
     Dosage: 300 MG
     Route: 048
     Dates: start: 20130526, end: 201404
  5. FLUOXETINE [Concomitant]
     Active Substance: FLUOXETINE\FLUOXETINE HYDROCHLORIDE
     Dosage: 40 MG
     Route: 048
     Dates: start: 20131212

REACTIONS (17)
  - Joint effusion [Recovered/Resolved]
  - Joint crepitation [Recovered/Resolved]
  - Pain in extremity [Recovered/Resolved]
  - Sciatica [Recovered/Resolved]
  - Disturbance in attention [Recovered/Resolved]
  - Back pain [Recovered/Resolved]
  - Paraesthesia [Recovered/Resolved]
  - Somnolence [Recovered/Resolved]
  - Drug intolerance [Recovered/Resolved]
  - Kidney ablation [Recovered/Resolved]
  - Dizziness [Recovered/Resolved]
  - Bone metabolism disorder [Recovered/Resolved]
  - Breast pain [Recovered/Resolved]
  - Pain in extremity [Recovered/Resolved]
  - Angiomyolipoma [Recovered/Resolved]
  - Feeling drunk [Recovered/Resolved]
  - Arthropathy [Recovered/Resolved]

NARRATIVE: CASE EVENT DATE: 20130527
